FAERS Safety Report 18313531 (Version 1)
Quarter: 2020Q3

REPORT INFORMATION
  Report Type: Spontaneous
  Country: US (occurrence: US)
  Receive Date: 20200925
  Receipt Date: 20200925
  Transmission Date: 20201103
  Serious: Yes (Hospitalization)
  Sender: FDA-Public Use
  Company Number: US-TEVA-2007R062896

PATIENT
  Age: 25 Year
  Sex: Male

DRUGS (5)
  1. PREDNISONE. [Concomitant]
     Active Substance: PREDNISONE
     Dosage: 20 MILLIGRAM DAILY; 20 MG DAILY
     Route: 065
  2. AZATHIOPRINE. [Concomitant]
     Active Substance: AZATHIOPRINE
     Dosage: 150 MILLIGRAM DAILY; 150 MG DAILY
     Route: 065
  3. QUETIAPINE. [Concomitant]
     Active Substance: QUETIAPINE
     Dosage: 300 MILLIGRAM DAILY; 300 MG DAILY
     Route: 048
  4. ESOMEPRAZOLE. [Concomitant]
     Active Substance: ESOMEPRAZOLE MAGNESIUM
     Dosage: 40 MILLIGRAM DAILY; 40 MG DAILY
     Route: 048
  5. VALPROIC ACID. [Suspect]
     Active Substance: VALPROIC ACID
     Dosage: 250 MILLIGRAM DAILY; 250 MG DAILY
     Route: 065

REACTIONS (2)
  - Eosinophilic pleural effusion [Recovered/Resolved]
  - Hypersensitivity [Recovered/Resolved]
